FAERS Safety Report 17435019 (Version 1)
Quarter: 2020Q1

REPORT INFORMATION
  Report Type: Spontaneous
  Country: US (occurrence: US)
  Receive Date: 20200203
  Receipt Date: 20200203
  Transmission Date: 20200409
  Serious: Yes (Hospitalization)
  Sender: FDA-Public Use
  Company Number: None

PATIENT
  Age: 79 Year
  Sex: Male
  Weight: 88.99 kg

DRUGS (2)
  1. FENTANYL (FENTANYL CITRATE 50MCG/ML INJ, SYRINGE, 2ML) [Suspect]
     Active Substance: FENTANYL CITRATE
     Indication: SURGERY
     Route: 042
     Dates: start: 20171218, end: 20171218
  2. FENTANYL (FENTANYL CITRATE 50MCG/ML INJ, SYRINGE, 2ML) [Suspect]
     Active Substance: FENTANYL CITRATE
     Indication: PAIN
     Route: 042
     Dates: start: 20171218, end: 20171218

REACTIONS (2)
  - Hypotension [None]
  - Bradycardia [None]

NARRATIVE: CASE EVENT DATE: 20171218
